FAERS Safety Report 24750358 (Version 1)
Quarter: 2024Q4

REPORT INFORMATION
  Report Type: Spontaneous
  Country: US (occurrence: US)
  Receive Date: 20241218
  Receipt Date: 20241218
  Transmission Date: 20250114
  Serious: No
  Sender: SANOFI AVENTIS
  Company Number: US-SA-2024SA372501

PATIENT
  Age: 16 Year
  Sex: Female

DRUGS (1)
  1. DUPIXENT [Suspect]
     Active Substance: DUPILUMAB
     Indication: Eosinophilic oesophagitis
     Dosage: 300MG/2ML QW
     Dates: start: 202408, end: 202410

REACTIONS (4)
  - Injection site pain [Unknown]
  - Injection site mass [Unknown]
  - Eosinophilic oesophagitis [Recovered/Resolved]
  - Rebound effect [Recovered/Resolved]
